FAERS Safety Report 16118286 (Version 1)
Quarter: 2019Q1

REPORT INFORMATION
  Report Type: Spontaneous
  Country: US (occurrence: US)
  Receive Date: 20190222
  Receipt Date: 20190222
  Transmission Date: 20190418
  Serious: No
  Sender: FDA-Public Use
  Company Number: None

PATIENT
  Sex: Female

DRUGS (18)
  1. FLUCONAZOLE. [Concomitant]
     Active Substance: FLUCONAZOLE
  2. MEDROXYPR AC [Concomitant]
  3. HYDROCO/APAP [Concomitant]
     Active Substance: ACETAMINOPHEN\HYDROCODONE
  4. IBU [Concomitant]
     Active Substance: IBUPROFEN
  5. METOCLOPRAM [Concomitant]
     Active Substance: METOCLOPRAMIDE
  6. METRONIDAZOL [Concomitant]
     Active Substance: METRONIDAZOLE
  7. LABETALOL [Concomitant]
     Active Substance: LABETALOL\LABETALOL HYDROCHLORIDE
  8. FLUOXETINE [Concomitant]
     Active Substance: FLUOXETINE HYDROCHLORIDE
  9. HYDROXYPROG CAPRO 250 MG/ML MDV [Suspect]
     Active Substance: HYDROXYPROGESTERONE CAPROATE
     Indication: PRODUCT USED FOR UNKNOWN INDICATION
     Dosage: ?          OTHER FREQUENCY:EVERY 7 DAYS X 20;?
     Route: 030
     Dates: start: 20190117
  10. CLOMIPHENE [Suspect]
     Active Substance: CLOMIPHENE
  11. LABETALOL [Concomitant]
     Active Substance: LABETALOL\LABETALOL HYDROCHLORIDE
  12. IBUPROFEN. [Concomitant]
     Active Substance: IBUPROFEN
  13. CLOMIPHENE [Concomitant]
     Active Substance: CLOMIPHENE
  14. STOOL SOFTENER (DOCUSATE) [Concomitant]
     Active Substance: DOCUSATE
  15. SUMATRIPTAN. [Concomitant]
     Active Substance: SUMATRIPTAN
  16. VENTOLIN HFA [Concomitant]
     Active Substance: ALBUTEROL SULFATE
  17. ONDANSETRON [Concomitant]
     Active Substance: ONDANSETRON
  18. MISOPROSTOL. [Concomitant]
     Active Substance: MISOPROSTOL

REACTIONS (2)
  - Labour complication [None]
  - Death neonatal [None]
